FAERS Safety Report 8777279 (Version 1)
Quarter: 2012Q4

REPORT INFORMATION
  Report Type: 
  Country: US (occurrence: US)
  Receive Date: 20120911
  Receipt Date: 20120911
  Transmission Date: 20130627
  Serious: Yes (Death)
  Sender: FDA-Public Use
  Company Number: US-BAXTER-2012BAX016706

PATIENT

DRUGS (1)
  1. CEFTRIAXONE INJECTION, USP (IN DEXTROSE) [Suspect]
     Indication: COMMUNITY ACQUIRED PNEUMONIA
     Route: 042

REACTIONS (1)
  - Death [Fatal]
